FAERS Safety Report 7207545-X (Version None)
Quarter: 2011Q1

REPORT INFORMATION
  Report Type: 
  Country: None (occurrence: None)
  Receive Date: 20110103
  Receipt Date: 20101224
  Transmission Date: 20110831
  Serious: Yes (Other)
  Sender: FDA-Public Use
  Company Number: GB-PFIZER INC-2010038416

PATIENT
  Age: 69 Year
  Sex: Male

DRUGS (8)
  1. ATENOLOL [Concomitant]
     Indication: PRODUCT USED FOR UNKNOWN INDICATION
     Dosage: 50 MG, 1X/DAY
  2. EZETIMIBE [Concomitant]
     Dosage: 10 MG, 1X/DAY
  3. FUCIDINE CAP [Interacting]
     Indication: DEVICE RELATED INFECTION
     Dosage: 2.25 G, 1X/DAY
  4. FLUCLOXACILLIN [Concomitant]
     Indication: DEVICE RELATED INFECTION
     Dosage: 2 G, 1X/DAY
  5. RAMIPRIL [Concomitant]
     Indication: PRODUCT USED FOR UNKNOWN INDICATION
     Dosage: 10 MG, 1X/DAY
  6. ATORVASTATIN CALCIUM [Suspect]
     Indication: HYPERLIPIDAEMIA
     Dosage: 40 MG, 1X/DAY
  7. ACETYLSALICYLIC ACID [Concomitant]
     Indication: PRODUCT USED FOR UNKNOWN INDICATION
     Dosage: 75 MG, 1X/DAY
  8. DICLOFENAC [Concomitant]
     Indication: PRODUCT USED FOR UNKNOWN INDICATION
     Dosage: 100 MG, 1X/DAY

REACTIONS (4)
  - DRUG INTERACTION [None]
  - MULTI-ORGAN FAILURE [None]
  - PNEUMONIA [None]
  - RHABDOMYOLYSIS [None]
